FAERS Safety Report 7342689-3 (Version None)
Quarter: 2011Q1

REPORT INFORMATION
  Report Type: 
  Country: None (occurrence: None)
  Receive Date: 20110310
  Receipt Date: 20110307
  Transmission Date: 20110831
  Serious: Yes (Other)
  Sender: FDA-Public Use
  Company Number: JP-PFIZER INC-2011048838

PATIENT
  Age: 78 Year
  Sex: Female

DRUGS (5)
  1. LYRICA [Suspect]
     Dosage: 150 MG DAILY
     Route: 048
     Dates: start: 20100901
  2. METHYCOBAL [Concomitant]
     Dosage: UNK
     Dates: start: 20100816, end: 20100819
  3. SELBEX [Concomitant]
     Dosage: UNK
     Dates: start: 20100816, end: 20100817
  4. LYRICA [Suspect]
     Indication: POST HERPETIC NEURALGIA
     Dosage: 75 MG, 1X/DAY
     Route: 048
     Dates: start: 20100818, end: 20100831
  5. LOXONIN [Concomitant]
     Dosage: UNK
     Dates: start: 20100816, end: 20100817

REACTIONS (3)
  - FALL [None]
  - SOMNOLENCE [None]
  - WEIGHT INCREASED [None]
